FAERS Safety Report 20228341 (Version 2)
Quarter: 2022Q1

REPORT INFORMATION
  Report Type: Spontaneous
  Country: SE (occurrence: SE)
  Receive Date: 20211224
  Receipt Date: 20220224
  Transmission Date: 20220423
  Serious: Yes (Hospitalization)
  Sender: FDA-Public Use
  Company Number: None

PATIENT
  Sex: Female

DRUGS (10)
  1. REVATIO [Suspect]
     Active Substance: SILDENAFIL CITRATE
     Indication: Pulmonary arterial hypertension
     Dosage: 10 MG/ML 0.5 ML X3 DE-ESCALATION
     Route: 048
     Dates: start: 202101, end: 20210203
  2. SOLU-CORTEF [Concomitant]
     Active Substance: HYDROCORTISONE SODIUM SUCCINATE
     Dosage: 0.3 ML, IN TOTAL 7 DOSES
     Dates: start: 20210107, end: 20210110
  3. CEFOTAXIME [Concomitant]
     Active Substance: CEFOTAXIME SODIUM
     Dosage: UNK
  4. PENICILLIN G [Concomitant]
     Active Substance: PENICILLIN G
     Dosage: UNK
     Dates: end: 20210124
  5. PENICILLIN G [Concomitant]
     Active Substance: PENICILLIN G
     Dosage: UNK
     Dates: end: 20210124
  6. MEROPENEM [Concomitant]
     Active Substance: MEROPENEM
     Dosage: UNK
  7. MEROPENEM [Concomitant]
     Active Substance: MEROPENEM
  8. CLOXACILLIN [Concomitant]
     Active Substance: CLOXACILLIN
     Dosage: UNK
  9. ATROPINE [Concomitant]
     Active Substance: ATROPINE
     Dosage: 1.4 ML, 7 DOSES
     Dates: start: 20210105
  10. FUROSEMIDE [Concomitant]
     Active Substance: FUROSEMIDE
     Dosage: 0.1 ML, AS NEEDED

REACTIONS (2)
  - Anaemia neonatal [Unknown]
  - Off label use [Unknown]

NARRATIVE: CASE EVENT DATE: 20210101
